FAERS Safety Report 24041034 (Version 1)
Quarter: 2024Q3

REPORT INFORMATION
  Report Type: Report from Study
  Country: US (occurrence: US)
  Receive Date: 20240702
  Receipt Date: 20240702
  Transmission Date: 20241017
  Serious: Yes (Hospitalization)
  Sender: ABBVIE
  Company Number: US-ABBVIE-5819024

PATIENT
  Age: 63 Year
  Sex: Female

DRUGS (1)
  1. HUMIRA [Suspect]
     Active Substance: ADALIMUMAB
     Indication: Product used for unknown indication
     Dosage: FORM STRENGTH 40 MILLIGRAM, CITRATE FREE
     Route: 058
     Dates: start: 2012, end: 202310

REACTIONS (4)
  - Female genital tract fistula [Unknown]
  - Crohn^s disease [Unknown]
  - Cystitis [Unknown]
  - Mental disorder [Unknown]

NARRATIVE: CASE EVENT DATE: 20240617
